FAERS Safety Report 23737389 (Version 1)
Quarter: 2024Q2

REPORT INFORMATION
  Report Type: Spontaneous
  Country: US (occurrence: US)
  Receive Date: 20240412
  Receipt Date: 20240412
  Transmission Date: 20240716
  Serious: No
  Sender: FDA-Public Use
  Company Number: US-SANDOZ-SDZ2024US037428

PATIENT

DRUGS (1)
  1. LATANOPROST [Suspect]
     Active Substance: LATANOPROST
     Indication: Product used for unknown indication
     Dosage: 2.5 ML, QD, 1 DROP INTO BOTH EYES AT BEDTIME
     Route: 047

REACTIONS (2)
  - Skin exfoliation [Unknown]
  - Burning sensation [Unknown]
